FAERS Safety Report 24564104 (Version 2)
Quarter: 2025Q1

REPORT INFORMATION
  Report Type: Spontaneous
  Country: JP (occurrence: JP)
  Receive Date: 20241030
  Receipt Date: 20250123
  Transmission Date: 20250408
  Serious: Yes (Disabling, Other)
  Sender: EXELIXIS
  Company Number: JP-TAKEDA-2024TJP015526

PATIENT
  Age: 74 Year
  Sex: Male

DRUGS (1)
  1. CABOMETYX [Suspect]
     Active Substance: CABOZANTINIB S-MALATE
     Indication: Renal cell carcinoma
     Dosage: 40 MG, QD
     Route: 048
     Dates: start: 20210605, end: 20241005

REACTIONS (3)
  - Interstitial lung disease [Recovering/Resolving]
  - Retinal degeneration [Not Recovered/Not Resolved]
  - Diarrhoea [Recovering/Resolving]

NARRATIVE: CASE EVENT DATE: 20241005
